FAERS Safety Report 19279949 (Version 1)
Quarter: 2021Q2

REPORT INFORMATION
  Report Type: Spontaneous
  Country: US (occurrence: US)
  Receive Date: 20210520
  Receipt Date: 20210520
  Transmission Date: 20210717
  Serious: No
  Sender: FDA-Public Use
  Company Number: NVSC2021US107025

PATIENT
  Sex: Male

DRUGS (3)
  1. TRIAMCINOLONE ACETONIDE. [Suspect]
     Active Substance: TRIAMCINOLONE ACETONIDE
     Indication: PSORIASIS
     Route: 065
  2. EUCRISA [Interacting]
     Active Substance: CRISABOROLE
     Indication: PSORIASIS
     Dosage: UNK, QD
     Route: 065
  3. BETAMETHASONE. [Suspect]
     Active Substance: BETAMETHASONE
     Indication: PSORIASIS
     Route: 065

REACTIONS (3)
  - Drug ineffective [Unknown]
  - Rash [Unknown]
  - Psoriasis [Unknown]
